FAERS Safety Report 13474567 (Version 1)
Quarter: 2017Q2

REPORT INFORMATION
  Report Type: Spontaneous
  Country: KZ (occurrence: KZ)
  Receive Date: 20170424
  Receipt Date: 20170424
  Transmission Date: 20170830
  Serious: Yes (Other)
  Sender: FDA-Public Use
  Company Number: PHHY2017KZ058269

PATIENT
  Sex: Female

DRUGS (1)
  1. ANGAL [Suspect]
     Active Substance: CHLORHEXIDINE\LIDOCAINE
     Indication: PRODUCT USED FOR UNKNOWN INDICATION
     Route: 065
     Dates: start: 201609, end: 201609

REACTIONS (2)
  - Angioedema [Unknown]
  - Dyspnoea [Unknown]
